FAERS Safety Report 20321507 (Version 1)
Quarter: 2022Q1

REPORT INFORMATION
  Report Type: Spontaneous
  Country: US (occurrence: None)
  Receive Date: 20220110
  Receipt Date: 20220110
  Transmission Date: 20220423
  Serious: No
  Sender: FDA-Public Use
  Company Number: None

PATIENT
  Age: 54 Year
  Sex: Female

DRUGS (1)
  1. GLATIRAMER ACETATE [Suspect]
     Active Substance: GLATIRAMER ACETATE
     Route: 058
     Dates: start: 2012

REACTIONS (4)
  - Hypoaesthesia [None]
  - Needle issue [None]
  - Injection site reaction [None]
  - Injection site discolouration [None]

NARRATIVE: CASE EVENT DATE: 20220110
